FAERS Safety Report 24888392 (Version 1)
Quarter: 2025Q1

REPORT INFORMATION
  Report Type: Spontaneous
  Country: US (occurrence: US)
  Receive Date: 20250127
  Receipt Date: 20250127
  Transmission Date: 20250408
  Serious: Yes (Other)
  Sender: COOPERSURGICAL
  Company Number: US-COOPERSURGICAL, INC.-2025CPS000311

PATIENT
  Age: 24 Year
  Sex: Female

DRUGS (1)
  1. PARAGARD T 380A [Suspect]
     Active Substance: COPPER
     Route: 015
     Dates: start: 201605

REACTIONS (13)
  - Reproductive complication associated with device [Not Recovered/Not Resolved]
  - Device breakage [Unknown]
  - Foreign body in reproductive tract [Unknown]
  - Complication of device removal [Unknown]
  - Ectopic pregnancy with contraceptive device [Recovered/Resolved]
  - Embedded device [Unknown]
  - Drug ineffective [Unknown]
  - Depression [Unknown]
  - Anxiety [Unknown]
  - Emotional disorder [Unknown]
  - Cervical cyst [Unknown]
  - Pain [Unknown]
  - Muscle spasms [Recovered/Resolved]

NARRATIVE: CASE EVENT DATE: 20210201
